FAERS Safety Report 23636678 (Version 1)
Quarter: 2024Q1

REPORT INFORMATION
  Report Type: Spontaneous
  Country: US (occurrence: US)
  Receive Date: 20240315
  Receipt Date: 20240315
  Transmission Date: 20240409
  Serious: No
  Sender: FDA-Public Use
  Company Number: US-ELI_LILLY_AND_COMPANY-US202403006530

PATIENT
  Age: 76 Year
  Sex: Female

DRUGS (5)
  1. BASAGLAR [Suspect]
     Active Substance: INSULIN GLARGINE
     Indication: Diabetes mellitus
     Dosage: 34 U, UNKNOWN
     Route: 058
     Dates: start: 2014
  2. BASAGLAR [Suspect]
     Active Substance: INSULIN GLARGINE
     Indication: Diabetes mellitus
     Dosage: 34 U, UNKNOWN
     Route: 058
     Dates: start: 2014
  3. BASAGLAR [Suspect]
     Active Substance: INSULIN GLARGINE
     Dosage: 34 U, UNKNOWN
     Route: 058
     Dates: start: 2014
  4. BASAGLAR [Suspect]
     Active Substance: INSULIN GLARGINE
     Dosage: 34 U, UNKNOWN
     Route: 058
     Dates: start: 2014
  5. TRULICITY [Suspect]
     Active Substance: DULAGLUTIDE
     Indication: Product used for unknown indication
     Dosage: UNK UNK, UNKNOWN
     Route: 058

REACTIONS (2)
  - Accidental underdose [Unknown]
  - Visual impairment [Unknown]

NARRATIVE: CASE EVENT DATE: 20240308
